FAERS Safety Report 14093460 (Version 1)
Quarter: 2017Q4

REPORT INFORMATION
  Report Type: Spontaneous
  Country: US (occurrence: US)
  Receive Date: 20171016
  Receipt Date: 20171016
  Transmission Date: 20180321
  Serious: Yes (Other)
  Sender: FDA-Public Use
  Company Number: None

PATIENT
  Age: 62 Year
  Sex: Male
  Weight: 38.7 kg

DRUGS (1)
  1. TEMOZOLOMIDE CAPSULES [Suspect]
     Active Substance: TEMOZOLOMIDE
     Indication: BRAIN NEOPLASM MALIGNANT
     Route: 002
     Dates: start: 20170922

REACTIONS (2)
  - Product quality issue [None]
  - Rash [None]

NARRATIVE: CASE EVENT DATE: 20171016
